FAERS Safety Report 5874414-7 (Version None)
Quarter: 2008Q3

REPORT INFORMATION
  Report Type: 
  Country: None (occurrence: None)
  Receive Date: 20080908
  Receipt Date: 20080827
  Transmission Date: 20090109
  Serious: Yes (Hospitalization)
  Sender: FDA-Public Use
  Company Number: AU-PFIZER INC-2008057022

PATIENT
  Sex: Female

DRUGS (6)
  1. CHANTIX [Suspect]
     Route: 048
  2. PREDNISONE [Concomitant]
     Route: 048
  3. ALL OTHER THERAPEUTIC PRODUCTS [Concomitant]
  4. FLUTICASONE PROPIONATE [Concomitant]
     Route: 055
  5. VENTOLIN [Concomitant]
     Route: 055
  6. SEREVENT [Concomitant]
     Route: 055

REACTIONS (1)
  - PULMONARY CONGESTION [None]
